FAERS Safety Report 5796249-6 (Version None)
Quarter: 2008Q3

REPORT INFORMATION
  Report Type: 
  Country: None (occurrence: None)
  Receive Date: 20080701
  Receipt Date: 20080623
  Transmission Date: 20090109
  Serious: Yes (Death, Hospitalization)
  Sender: FDA-Public Use
  Company Number: NL-ASTRAZENECA-2008AC01568

PATIENT
  Age: 29018 Day
  Sex: Female

DRUGS (7)
  1. ARIMIDEX [Suspect]
     Indication: BREAST CANCER
     Route: 048
     Dates: start: 20061030
  2. CALCICHEW [Concomitant]
     Indication: OSTEOPOROSIS
     Dates: start: 20061030
  3. FUROSEMIDE [Concomitant]
     Indication: HYPERTENSION
  4. SPIRONOLACTONE [Concomitant]
     Indication: HYPERTENSION
  5. URSOCHOL [Concomitant]
     Indication: HEPATIC CIRRHOSIS
     Dosage: 300 BID - TOTAL DAILY DOSE 600
  6. NOVOLOG MIX 70/30 [Concomitant]
     Dosage: 100 BID - TOTAL DAILY DOSE 200 IE/ML
  7. TOLBUTAMIDE [Concomitant]
     Indication: DIABETES MELLITUS
     Route: 048

REACTIONS (4)
  - CONFUSIONAL STATE [None]
  - ERYSIPELAS [None]
  - FATIGUE [None]
  - RESPIRATORY FAILURE [None]
